FAERS Safety Report 9927917 (Version 4)
Quarter: 2014Q2

REPORT INFORMATION
  Report Type: Spontaneous
  Country: US (occurrence: US)
  Receive Date: 20140227
  Receipt Date: 20140411
  Transmission Date: 20141212
  Serious: No
  Sender: FDA-Public Use
  Company Number: US-PFIZER INC-2013130505

PATIENT
  Age: 55 Year
  Sex: Female
  Weight: 58.96 kg

DRUGS (3)
  1. LYRICA [Suspect]
     Dosage: 150 MG (TAKING 2 CAPSULES 75MG IN MORNING AND 2 CAPSULES 75MG IN NIGHT), 2X/DAY
     Route: 048
     Dates: start: 2006, end: 20130420
  2. LYRICA [Suspect]
     Dosage: 75 MG, 2X/DAY
     Route: 048
     Dates: start: 20130421
  3. REBIF [Concomitant]
     Dosage: UNK

REACTIONS (1)
  - Nasopharyngitis [Unknown]
